FAERS Safety Report 5317356-8 (Version None)
Quarter: 2007Q2

REPORT INFORMATION
  Report Type: 
  Country: None (occurrence: None)
  Receive Date: 20070504
  Receipt Date: 20070427
  Transmission Date: 20071010
  Serious: Yes (Life-Threatening)
  Sender: FDA-Public Use
  Company Number: GB-GENENTECH-240804

PATIENT
  Age: 22 Year
  Sex: Male

DRUGS (5)
  1. MABTHERA [Suspect]
     Indication: B-CELL LYMPHOMA
     Dosage: UNK, UNK
     Dates: start: 20070301
  2. CYCLOPHOSPHAMIDE [Suspect]
     Indication: B-CELL LYMPHOMA
     Dosage: UNK, UNK
     Dates: start: 20070301
  3. ADRIAMYCIN PFS [Suspect]
     Indication: B-CELL LYMPHOMA
     Dosage: UNK, UNK
     Dates: start: 20070301
  4. VINCRISTINE [Suspect]
     Indication: B-CELL LYMPHOMA
     Dosage: UNK, UNK
     Dates: start: 20070301
  5. PREDNISONE TAB [Suspect]
     Indication: B-CELL LYMPHOMA
     Dosage: UNK, UNK
     Dates: start: 20070301

REACTIONS (4)
  - COLITIS [None]
  - CYTOMEGALOVIRUS INFECTION [None]
  - HEPATITIS [None]
  - PNEUMONITIS [None]
